FAERS Safety Report 21189970 (Version 8)
Quarter: 2022Q4

REPORT INFORMATION
  Report Type: Spontaneous
  Country: CO (occurrence: CO)
  Receive Date: 20220809
  Receipt Date: 20221212
  Transmission Date: 20230113
  Serious: Yes (Hospitalization, Other)
  Sender: FDA-Public Use
  Company Number: CO-GLAXOSMITHKLINE-CO2022AMR116286

PATIENT

DRUGS (1)
  1. BELIMUMAB [Suspect]
     Active Substance: BELIMUMAB
     Indication: Systemic lupus erythematosus
     Dosage: 640 MG, Z (640 MG/28 DAYS)
     Dates: start: 20200924

REACTIONS (11)
  - Post procedural haemorrhage [Recovered/Resolved]
  - Leukopenia [Recovered/Resolved]
  - Aspiration bone marrow [Recovered/Resolved]
  - Adverse drug reaction [Recovered/Resolved]
  - Abdominal pain [Recovered/Resolved]
  - Inguinal hernia repair [Recovered/Resolved]
  - Dehiscence [Recovered/Resolved]
  - Bladder disorder [Recovered/Resolved]
  - Back pain [Recovered/Resolved]
  - Pollakiuria [Recovered/Resolved]
  - Inappropriate schedule of product administration [Unknown]

NARRATIVE: CASE EVENT DATE: 20220801
